FAERS Safety Report 17715554 (Version 1)
Quarter: 2020Q2

REPORT INFORMATION
  Report Type: Spontaneous
  Country: SE (occurrence: SE)
  Receive Date: 20200427
  Receipt Date: 20200427
  Transmission Date: 20200714
  Serious: Yes (Other)
  Sender: FDA-Public Use
  Company Number: SE-ALLERGAN-2016881US

PATIENT
  Sex: Female
  Weight: 65 kg

DRUGS (1)
  1. NITROGLYCERIN - BP [Suspect]
     Active Substance: NITROGLYCERIN
     Indication: ANAL FISSURE
     Dosage: UNK
     Route: 065
     Dates: start: 20200325, end: 20200328

REACTIONS (3)
  - Vision blurred [Recovering/Resolving]
  - Migraine [Recovering/Resolving]
  - Visual impairment [Recovering/Resolving]

NARRATIVE: CASE EVENT DATE: 202003
